FAERS Safety Report 5252484-7 (Version None)
Quarter: 2007Q1

REPORT INFORMATION
  Report Type: 
  Country: None (occurrence: None)
  Receive Date: 20070301
  Receipt Date: 20061206
  Transmission Date: 20070707
  Serious: Yes (Death)
  Sender: FDA-Public Use
  Company Number: US-BRISTOL-MYERS SQUIBB COMPANY-13607858

PATIENT
  Age: 73 Year
  Sex: Female

DRUGS (6)
  1. ERBITUX [Suspect]
     Indication: TONGUE NEOPLASM MALIGNANT STAGE UNSPECIFIED
     Route: 042
     Dates: start: 20060804
  2. CISPLATIN [Suspect]
     Indication: TONGUE NEOPLASM MALIGNANT STAGE UNSPECIFIED
     Dates: start: 20060804
  3. SODIUM CHLORIDE [Concomitant]
     Route: 042
     Dates: start: 20060804
  4. BENADRYL [Concomitant]
     Indication: PREMEDICATION
     Route: 042
  5. DECADRON [Concomitant]
     Indication: PREMEDICATION
     Route: 042
  6. ATIVAN [Concomitant]
     Indication: PREMEDICATION
     Route: 042

REACTIONS (1)
  - DEATH [None]
